FAERS Safety Report 5897424-2 (Version None)
Quarter: 2008Q3

REPORT INFORMATION
  Report Type: 
  Country: None (occurrence: None)
  Receive Date: 20080925
  Receipt Date: 20080915
  Transmission Date: 20090109
  Serious: Yes (Other)
  Sender: FDA-Public Use
  Company Number: CA-JNJFOC-20080903630

PATIENT
  Sex: Male
  Weight: 123 kg

DRUGS (3)
  1. REMICADE [Suspect]
     Indication: SWEAT GLAND INFECTION
     Route: 042
  2. REMICADE [Suspect]
     Indication: PSORIASIS
     Route: 042
  3. REMICADE [Suspect]
     Indication: CROHN'S DISEASE
     Route: 042

REACTIONS (2)
  - ANAL FISTULA [None]
  - CROHN'S DISEASE [None]
